FAERS Safety Report 17434071 (Version 1)
Quarter: 2020Q1

REPORT INFORMATION
  Report Type: Spontaneous
  Country: US (occurrence: US)
  Receive Date: 20200203
  Receipt Date: 20200203
  Transmission Date: 20200409
  Serious: Yes (Hospitalization)
  Sender: FDA-Public Use
  Company Number: None

PATIENT
  Age: 58 Year
  Sex: Female

DRUGS (16)
  1. PREDNISONE. [Concomitant]
     Active Substance: PREDNISONE
  2. NIFEDIPINE. [Concomitant]
     Active Substance: NIFEDIPINE
  3. OPSUMIT [Suspect]
     Active Substance: MACITENTAN
     Indication: PULMONARY HYPERTENSION
     Route: 048
     Dates: start: 201808
  4. SILDENAFIL DIGOXIN [Concomitant]
  5. CLEARLAX [Concomitant]
     Active Substance: POLYETHYLENE GLYCOL 3350
  6. CELLCEPT [Concomitant]
     Active Substance: MYCOPHENOLATE MOFETIL\MYCOPHENOLATE MOFETIL HYDROCHLORIDE
  7. VITRON-C [Concomitant]
     Active Substance: ASCORBIC ACID\IRON
  8. FLONASE [Concomitant]
     Active Substance: FLUTICASONE PROPIONATE
  9. ASPIRIN. [Concomitant]
     Active Substance: ASPIRIN
  10. PROBIATA [Concomitant]
  11. BENADRYL [Concomitant]
     Active Substance: DIPHENHYDRAMINE HYDROCHLORIDE
  12. TORSEMIDE. [Concomitant]
     Active Substance: TORSEMIDE
  13. K-TAB [Concomitant]
     Active Substance: POTASSIUM CHLORIDE
  14. PENTOXIVYLLINE [Concomitant]
  15. ATORVASTATIN [Concomitant]
     Active Substance: ATORVASTATIN
  16. RANITIDINE. [Concomitant]
     Active Substance: RANITIDINE

REACTIONS (1)
  - Dry gangrene [None]

NARRATIVE: CASE EVENT DATE: 20191205
